FAERS Safety Report 24263270 (Version 1)
Quarter: 2024Q3

REPORT INFORMATION
  Report Type: Report from Study
  Country: US (occurrence: US)
  Receive Date: 20240829
  Receipt Date: 20240829
  Transmission Date: 20241017
  Serious: Yes (Other)
  Sender: ROCHE
  Company Number: US-ROCHE-10000065304

PATIENT

DRUGS (1)
  1. XOLAIR [Suspect]
     Active Substance: OMALIZUMAB
     Indication: Product used for unknown indication
     Route: 065

REACTIONS (8)
  - Urticaria [Unknown]
  - Poor quality sleep [Unknown]
  - Pharyngeal swelling [Unknown]
  - Paraesthesia oral [Unknown]
  - Anaphylactic shock [Unknown]
  - Pharyngeal paraesthesia [Unknown]
  - Pneumothorax [Unknown]
  - Anaphylactic reaction [Unknown]
